FAERS Safety Report 4886585-X (Version None)
Quarter: 2005Q4

REPORT INFORMATION
  Report Type: 
  Country: None (occurrence: None)
  Receive Date: 20051220
  Receipt Date: 20050107
  Transmission Date: 20060501
  Serious: Yes (Other)
  Sender: FDA-Public Use
  Company Number: HQWYE519611JAN05

PATIENT
  Sex: Female

DRUGS (1)
  1. EFFEXOR XR [Suspect]
     Indication: HEADACHE
     Dosage: WEANED OFF THERAPY, ORAL
     Route: 048

REACTIONS (1)
  - SUICIDAL IDEATION [None]
